FAERS Safety Report 12661884 (Version 1)
Quarter: 2016Q3

REPORT INFORMATION
  Report Type: Spontaneous
  Country: US (occurrence: US)
  Receive Date: 20160817
  Receipt Date: 20160817
  Transmission Date: 20161109
  Serious: No
  Sender: FDA-Public Use
  Company Number: US-ASTRAZENECA-2016SE79367

PATIENT
  Age: 75 Year
  Sex: Male
  Weight: 88.5 kg

DRUGS (1)
  1. SEROQUEL [Suspect]
     Active Substance: QUETIAPINE FUMARATE
     Dosage: 1 PILL TWO TIMES A DAY FOR 3 DAYS, THEN 1 PILL DAILY FOR 3 DAYS.
     Route: 048
     Dates: start: 20160719

REACTIONS (1)
  - Tremor [Not Recovered/Not Resolved]
